FAERS Safety Report 10023455 (Version 3)
Quarter: 2014Q1

REPORT INFORMATION
  Report Type: Spontaneous
  Country: US (occurrence: None)
  Receive Date: 20131224
  Receipt Date: 20140127
  Transmission Date: 20141002
  Serious: Yes (Other)
  Sender: FDA-Public Use
  Company Number: AUR-APL-2013-10244

PATIENT
  Age: 52 Year
  Sex: Female

DRUGS (2)
  1. RAMIPRIL [Suspect]
     Indication: HYPERTENSION
     Dosage: (5 MG), UNKNOWN
     Route: 048
     Dates: start: 20130303, end: 20131123
  2. LEVOTHYROXINE (LEVOTHYROXINE) [Concomitant]

REACTIONS (9)
  - Angioedema [None]
  - Headache [None]
  - Dysphagia [None]
  - Choking [None]
  - Panic attack [None]
  - Weight increased [None]
  - Rash [None]
  - Periorbital oedema [None]
  - Erythema [None]
